FAERS Safety Report 14607067 (Version 1)
Quarter: 2018Q1

REPORT INFORMATION
  Report Type: Spontaneous
  Country: US (occurrence: US)
  Receive Date: 20180306
  Receipt Date: 20180306
  Transmission Date: 20180509
  Serious: Yes (Other)
  Sender: FDA-Public Use
  Company Number: None

PATIENT
  Age: 62 Year
  Sex: Male
  Weight: 71.21 kg

DRUGS (4)
  1. XOPENEX HFA INHALER [Concomitant]
  2. MULTI VITAMINS [Concomitant]
     Active Substance: VITAMINS
  3. SULFAMETHOXAZOLE AND TRIMETHOPRIM DS [Suspect]
     Active Substance: SULFAMETHOXAZOLE\TRIMETHOPRIM
     Indication: EAR INFECTION
     Dosage: 800MG-160-MG TAKE 1 TAB BY MOUTH TWICE A DAY TAKEN BY MOUTH***
     Route: 048
     Dates: start: 20170913, end: 20170926
  4. ALVESCO AER INHALER [Concomitant]

REACTIONS (4)
  - Vomiting [None]
  - Nausea [None]
  - Diarrhoea [None]
  - Penile ulceration [None]

NARRATIVE: CASE EVENT DATE: 20170918
